FAERS Safety Report 5206768-9 (Version None)
Quarter: 2006Q4

REPORT INFORMATION
  Report Type: 
  Country: None (occurrence: None)
  Receive Date: 20061031
  Receipt Date: 20060726
  Transmission Date: 20070319
  Serious: Yes (Other)
  Sender: FDA-Public Use
  Company Number: US200607005338

PATIENT
  Age: 34 Year
  Sex: Female

DRUGS (1)
  1. SYMBYAX [Suspect]
     Dosage: D/F
     Dates: start: 20051201

REACTIONS (3)
  - BLOOD GLUCOSE INCREASED [None]
  - INCREASED APPETITE [None]
  - WEIGHT INCREASED [None]
